FAERS Safety Report 16868762 (Version 2)
Quarter: 2019Q4

REPORT INFORMATION
  Report Type: Spontaneous
  Country: US (occurrence: US)
  Receive Date: 20190930
  Receipt Date: 20191001
  Transmission Date: 20200122
  Serious: No
  Sender: FDA-Public Use
  Company Number: US-PFIZER INC-2019420071

PATIENT
  Age: 58 Year
  Sex: Female
  Weight: 68.4 kg

DRUGS (3)
  1. TYLENOL [Concomitant]
     Active Substance: ACETAMINOPHEN
     Indication: PAIN
     Dosage: 200 MG, AS NEEDED
  2. LYRICA [Suspect]
     Active Substance: PREGABALIN
     Indication: NEURALGIA
     Dosage: 25 MG, 1X/DAY (AT NIGHT)
     Route: 048
     Dates: start: 20190320, end: 20190724
  3. LYRICA [Suspect]
     Active Substance: PREGABALIN
     Indication: HYPOAESTHESIA

REACTIONS (15)
  - Eye pain [Unknown]
  - Chills [Not Recovered/Not Resolved]
  - Paraesthesia [Not Recovered/Not Resolved]
  - Peripheral coldness [Not Recovered/Not Resolved]
  - Photophobia [Recovering/Resolving]
  - Secretion discharge [Not Recovered/Not Resolved]
  - Muscular weakness [Unknown]
  - Feeling abnormal [Not Recovered/Not Resolved]
  - Dizziness [Recovering/Resolving]
  - Muscle spasms [Recovering/Resolving]
  - Vision blurred [Not Recovered/Not Resolved]
  - Night sweats [Not Recovered/Not Resolved]
  - Myalgia [Not Recovered/Not Resolved]
  - Erythema [Not Recovered/Not Resolved]
  - Irritability [Not Recovered/Not Resolved]

NARRATIVE: CASE EVENT DATE: 201904
